FAERS Safety Report 6076775-5 (Version None)
Quarter: 2009Q1

REPORT INFORMATION
  Report Type: 
  Country: None (occurrence: None)
  Receive Date: 20090212
  Receipt Date: 20090212
  Transmission Date: 20090719
  Serious: Yes (Hospitalization)
  Sender: FDA-Public Use
  Company Number: None

PATIENT
  Sex: Female

DRUGS (1)
  1. RECLAST [Suspect]
     Indication: OSTEOPOROSIS
     Dosage: ONE TIME IV
     Route: 042
     Dates: start: 20080711

REACTIONS (4)
  - ARTHRALGIA [None]
  - EXTRASKELETAL OSSIFICATION [None]
  - MUSCULOSKELETAL PAIN [None]
  - PYREXIA [None]
